FAERS Safety Report 10860764 (Version 1)
Quarter: 2015Q1

REPORT INFORMATION
  Report Type: Other
  Country: IN (occurrence: IN)
  Receive Date: 20150224
  Receipt Date: 20150224
  Transmission Date: 20150721
  Serious: Yes (Hospitalization, Other)
  Sender: FDA-Public Use
  Company Number: IN-LUPIN PHARMACEUTICALS INC.-2015-00532

PATIENT
  Age: 24 Year
  Sex: Female

DRUGS (2)
  1. LEVOFLOXACIN. [Suspect]
     Active Substance: LEVOFLOXACIN
     Indication: BACTERIAL INFECTION
     Route: 042
  2. PIPERACILLIN [Suspect]
     Active Substance: PIPERACILLIN
     Indication: BACTERIAL INFECTION
     Route: 042

REACTIONS (1)
  - Status epilepticus [Unknown]
